FAERS Safety Report 18251697 (Version 1)
Quarter: 2020Q3

REPORT INFORMATION
  Report Type: Spontaneous
  Country: US (occurrence: US)
  Receive Date: 20200910
  Receipt Date: 20200910
  Transmission Date: 20201103
  Serious: No
  Sender: FDA-Public Use
  Company Number: US-GLENMARK PHARMACEUTICALS-2020GMK048784

PATIENT

DRUGS (2)
  1. RILUZOLE TABLETS USP, 50 MG [Suspect]
     Active Substance: RILUZOLE
     Indication: MOTOR NEURONE DISEASE
     Dosage: 50 MILLIGRAM, BID
     Route: 065
     Dates: start: 201912
  2. RILUZOLE TABLETS USP, 50 MG [Suspect]
     Active Substance: RILUZOLE
     Indication: LOWER MOTOR NEURONE LESION

REACTIONS (1)
  - Insomnia [Not Recovered/Not Resolved]
